FAERS Safety Report 7301909-1 (Version None)
Quarter: 2011Q1

REPORT INFORMATION
  Report Type: 
  Country: None (occurrence: None)
  Receive Date: 20110218
  Receipt Date: 20110208
  Transmission Date: 20110831
  Serious: Yes (Other)
  Sender: FDA-Public Use
  Company Number: JP-ROCHE-748651

PATIENT
  Age: 69 Year
  Sex: Female

DRUGS (6)
  1. HERCEPTIN [Suspect]
     Dosage: DOSAGE IS UNCERTAIN.
     Route: 041
  2. TAXOTERE [Concomitant]
     Route: 041
  3. VINORELBINE TARTRATE [Concomitant]
     Dosage: DOSAGE IS UNCERTAIN.
     Route: 042
  4. HERCEPTIN [Suspect]
     Indication: BREAST CANCER RECURRENT
     Dosage: DOSAGE IS UNCERTAIN.
     Route: 041
  5. XELODA [Suspect]
     Indication: BREAST CANCER RECURRENT
     Dosage: DOSAGE IS UNCERTAIN.
     Route: 048
  6. HERCEPTIN [Suspect]
     Dosage: DOSAGE IS UNCERTAIN.
     Route: 041

REACTIONS (1)
  - DERMATOMYOSITIS [None]
